FAERS Safety Report 4612193-1 (Version None)
Quarter: 2005Q1

REPORT INFORMATION
  Report Type: 
  Country: None (occurrence: None)
  Receive Date: 20050316
  Receipt Date: 20050314
  Transmission Date: 20050727
  Serious: Yes (Death)
  Sender: FDA-Public Use
  Company Number: 200421006BWH

PATIENT
  Age: 46 Year
  Sex: Female

DRUGS (11)
  1. AVELOX [Suspect]
     Indication: BRONCHITIS
     Dosage: 400 MG, ONCE, ORAL
     Route: 048
     Dates: start: 20041101
  2. ZITHROMAX [Concomitant]
  3. CRESTOR [Concomitant]
  4. AVANDIA [Concomitant]
  5. ADVAIR DISKUS 100/50 [Concomitant]
  6. COMBIVENT [Concomitant]
  7. LORAZEPAM [Concomitant]
  8. GLUCOVANCE [Concomitant]
  9. GLAUCOMA EYE DROPS [Concomitant]
  10. CLARINEX [Concomitant]
  11. ROBITUSSIN WITH CODEINE [Concomitant]

REACTIONS (3)
  - ANAPHYLACTIC SHOCK [None]
  - BRONCHITIS [None]
  - PNEUMONIA [None]
